FAERS Safety Report 26151241 (Version 1)
Quarter: 2025Q4

REPORT INFORMATION
  Report Type: Spontaneous
  Country: US (occurrence: US)
  Receive Date: 20251212
  Receipt Date: 20251212
  Transmission Date: 20260117
  Serious: Yes (Hospitalization)
  Sender: MERCK SHARP & DOHME LLC
  Company Number: US-009507513-2356413

PATIENT
  Age: 72 Year
  Sex: Female

DRUGS (2)
  1. PEMBROLIZUMAB [Suspect]
     Active Substance: PEMBROLIZUMAB
     Indication: Invasive ductal breast carcinoma
  2. TAXOL [Concomitant]
     Active Substance: PACLITAXEL
     Indication: Invasive ductal breast carcinoma

REACTIONS (1)
  - Immune-mediated myocarditis [Recovered/Resolved]
